FAERS Safety Report 20901418 (Version 1)
Quarter: 2022Q2

REPORT INFORMATION
  Report Type: Spontaneous
  Country: TR (occurrence: TR)
  Receive Date: 20220601
  Receipt Date: 20220601
  Transmission Date: 20220721
  Serious: Yes (Other)
  Sender: FDA-Public Use
  Company Number: TR-AMGEN-TURSP2022092272

PATIENT
  Age: 5 Year
  Sex: Female

DRUGS (11)
  1. FILGRASTIM [Suspect]
     Active Substance: FILGRASTIM
     Indication: Prophylaxis
     Route: 065
  2. AZACITIDINE [Concomitant]
     Active Substance: AZACITIDINE
     Indication: Prophylaxis
     Dosage: 50 MILLIGRAM/SQ. METER FOR 5 DAYS
  3. LAMIVUDINE [Concomitant]
     Active Substance: LAMIVUDINE
     Indication: Prophylaxis
     Dosage: UNK
  4. FLUDARABINE [Concomitant]
     Active Substance: FLUDARABINE PHOSPHATE
     Indication: Prophylaxis
     Dosage: 30 MILLIGRAM/SQ. METER DAILY FOR 3 DAYS
  5. FLUDARABINE [Concomitant]
     Active Substance: FLUDARABINE PHOSPHATE
     Dosage: 25 MILLIGRAM/SQ. METER DAILY FOR -7 TO -2 DAYS
  6. CYTARABINE [Concomitant]
     Active Substance: CYTARABINE
     Indication: Prophylaxis
     Dosage: 300 MILLIGRAM/SQ. METER DAILY FOR 3 DAYS
  7. CYCLOPHOSPHAMIDE [Concomitant]
     Active Substance: CYCLOPHOSPHAMIDE
     Indication: Prophylaxis
     Dosage: 10 MILLILITRE PER KILOGRAM DAILY, -5 TO -2 DAYS
  8. CYCLOSPORINE [Concomitant]
     Active Substance: CYCLOSPORINE
     Indication: Prophylaxis
     Dosage: 2 X 1 MG/KG/DOSE TWICE A DAY
  9. METHOTREXATE [Concomitant]
     Active Substance: METHOTREXATE
     Indication: Prophylaxis
     Dosage: 10 MILLILITRE PER SQUARE METRE ON DAY +1
  10. METHOTREXATE [Concomitant]
     Active Substance: METHOTREXATE
     Dosage: 8 MILLILITRE PER SQUARE METRE ON DAYS +3, +7, AND +11
  11. DEFIBROTIDE [Concomitant]
     Active Substance: DEFIBROTIDE (BOVINE)
     Indication: Prophylaxis
     Dosage: FOR 30 DAYS (-8 TO DAY +21)

REACTIONS (2)
  - Cytomegalovirus infection reactivation [Recovered/Resolved]
  - Graft versus host disease in skin [Recovered/Resolved]
